FAERS Safety Report 12831943 (Version 2)
Quarter: 2016Q4

REPORT INFORMATION
  Report Type: Spontaneous
  Country: ES (occurrence: ES)
  Receive Date: 20161010
  Receipt Date: 20161215
  Transmission Date: 20170207
  Serious: Yes (Hospitalization)
  Sender: FDA-Public Use
  Company Number: ES-AXELLIA-000990

PATIENT
  Age: 54 Year
  Sex: Male

DRUGS (2)
  1. TERLIPRESSIN/TERLIPRESSIN ACETATE [Suspect]
     Active Substance: TERLIPRESSIN
     Indication: PRODUCT USED FOR UNKNOWN INDICATION
  2. VANCOMYCIN [Suspect]
     Active Substance: VANCOMYCIN
     Indication: PRODUCT USED FOR UNKNOWN INDICATION

REACTIONS (3)
  - Linear IgA disease [Recovered/Resolved]
  - Skin necrosis [Recovered/Resolved]
  - Hepatorenal syndrome [None]
